FAERS Safety Report 16045789 (Version 1)
Quarter: 2019Q2

REPORT INFORMATION
  Report Type: Spontaneous
  Country: US (occurrence: US)
  Receive Date: 20190306
  Receipt Date: 20190306
  Transmission Date: 20190711
  Serious: No
  Sender: FDA-Public Use
  Company Number: None

PATIENT
  Age: 13 Year
  Sex: Female
  Weight: 67.5 kg

DRUGS (3)
  1. DESMOPRESSIN [Concomitant]
     Active Substance: DESMOPRESSIN
  2. EPIDUO [Suspect]
     Active Substance: ADAPALENE\BENZOYL PEROXIDE
     Indication: ACNE
     Dosage: ?          QUANTITY:1 PUMP;?
     Route: 062
  3. ACETAMINOPHEN. [Concomitant]
     Active Substance: ACETAMINOPHEN

REACTIONS (4)
  - Facial pain [None]
  - Application site pain [None]
  - Burning sensation [None]
  - Skin exfoliation [None]
